FAERS Safety Report 4190006 (Version 14)
Quarter: 2013Q1

REPORT INFORMATION
  Report Type: Spontaneous
  Country: JP (occurrence: JP)
  Receive Date: 20040813
  Receipt Date: 20121003
  Transmission Date: 20140127
  Serious: Yes (Death, Life-Threatening, Hospitalization, Other)
  Sender: FDA-Public Use
  Company Number: PHBS2004JP07535

PATIENT
  Age: 55 None
  Sex: Male
  Weight: 64 kg

DRUGS (4)
  1. GLIVEC [Suspect]
     Indication: CHRONIC MYELOID LEUKAEMIA
     Dosage: 400 MG DAILY
     Route: 048
     Dates: start: 200310, end: 20031124
  2. GLIVEC [Suspect]
     Dosage: 300 MG DAILY
     Route: 048
     Dates: start: 20031125, end: 20040527
  3. ADALAT CR [Concomitant]
     Indication: HYPERTENSION
     Dosage: 20 MG, UNK
     Route: 048
     Dates: start: 20031015, end: 20040602
  4. ZYLORIC [Concomitant]
     Indication: HYPERURICAEMIA
     Dosage: 200 MG, UNK
     Route: 048
     Dates: start: 20031015, end: 20040212

REACTIONS (24)
  - Multi-organ failure [Fatal]
  - Depressed level of consciousness [Fatal]
  - Hepatitis B [Fatal]
  - Renal failure [Fatal]
  - Pneumonia [Fatal]
  - Hepatitis [Fatal]
  - Coma hepatic [Fatal]
  - Dyspepsia [Fatal]
  - Hepatic function abnormal [Fatal]
  - Hepatic encephalopathy [Fatal]
  - Blood bilirubin increased [Fatal]
  - Jaundice [Fatal]
  - Red blood cell count decreased [Fatal]
  - Malaise [Fatal]
  - Haemoglobin decreased [Fatal]
  - Hypotension [Fatal]
  - Respiratory distress [Fatal]
  - Platelet count decreased [Unknown]
  - Prothrombin time prolonged [Unknown]
  - Neutropenia [Unknown]
  - Lymphopenia [Unknown]
  - Fatigue [Unknown]
  - White blood cell count decreased [Recovered/Resolved]
  - Haematocrit decreased [Recovering/Resolving]
